FAERS Safety Report 9993368 (Version 1)
Quarter: 2014Q1

REPORT INFORMATION
  Report Type: Report from Study
  Country: BR (occurrence: BR)
  Receive Date: 20140310
  Receipt Date: 20140310
  Transmission Date: 20141002
  Serious: Yes (Other)
  Sender: FDA-Public Use
  Company Number: PHHY2014BR025218

PATIENT
  Age: 64 Year
  Sex: Male
  Weight: 84 kg

DRUGS (12)
  1. DIOVAN AMLO FIX [Suspect]
     Indication: HYPERTENSION
     Dosage: ONCE IN THE MORNING
     Route: 048
     Dates: start: 20140206
  2. DIOVAN AMLO FIX [Suspect]
     Indication: CHEST PAIN
  3. SIMVASTATIN [Suspect]
     Indication: HYPERTENSION
     Dosage: 1 DF, QD ONCE IN THE MORNING (20 MG)
     Route: 048
  4. CLOPIDOGREL [Suspect]
     Indication: HYPERTENSION
     Dosage: 1 DF, QD ONCE DURING LUNCH
     Route: 048
  5. CLOPIDOGREL [Suspect]
     Indication: CARDIAC DISORDER
  6. PROCORALAN [Concomitant]
     Indication: CHEST PAIN
     Dosage: UNK UKN, UNK
  7. VASTAREL [Concomitant]
     Indication: CHEST PAIN
     Dosage: UNK UKN, UNK
  8. MONOCORDIL [Concomitant]
     Indication: CHEST PAIN
     Dosage: UNK UKN, UNK
  9. MONOCORDIL [Concomitant]
     Indication: HYPERTENSION
  10. OMEPRAZOLE [Concomitant]
     Indication: GASTROINTESTINAL DISORDER
     Dosage: UNK UKN, UNK
  11. PROLOPA [Concomitant]
     Indication: SPINAL DISORDER
     Dosage: UNK UKN, UNK
  12. TRAMADOL [Concomitant]
     Dosage: 1 DF, TID (1 IN MORNING, 1 IN AFTERNOON AND 1 AT NIGHT))

REACTIONS (10)
  - Blood pressure increased [Unknown]
  - Limb discomfort [Unknown]
  - Exostosis [Unknown]
  - Condition aggravated [Unknown]
  - Movement disorder [Unknown]
  - Heart rate decreased [Unknown]
  - Neck pain [Unknown]
  - Pain in extremity [Unknown]
  - Somnolence [Unknown]
  - Chest pain [Unknown]
